FAERS Safety Report 13134811 (Version 4)
Quarter: 2018Q1

REPORT INFORMATION
  Report Type: Spontaneous
  Country: CH (occurrence: CH)
  Receive Date: 20170120
  Receipt Date: 20180223
  Transmission Date: 20180508
  Serious: Yes (Life-Threatening, Disabling)
  Sender: FDA-Public Use
  Company Number: CH-UCBSA-2017001247

PATIENT
  Sex: Female

DRUGS (3)
  1. CIMZIA [Suspect]
     Active Substance: CERTOLIZUMAB PEGOL
     Dosage: UNK
  2. METHOTREXATE. [Concomitant]
     Active Substance: METHOTREXATE
     Indication: RHEUMATOID ARTHRITIS
     Dosage: UNK
  3. CIMZIA [Suspect]
     Active Substance: CERTOLIZUMAB PEGOL
     Indication: RHEUMATOID ARTHRITIS
     Dosage: 200 MG, EV 2 WEEKS(QOW)
     Route: 058

REACTIONS (1)
  - Rectal cancer [Not Recovered/Not Resolved]

NARRATIVE: CASE EVENT DATE: 201605
